FAERS Safety Report 9345887 (Version 3)
Quarter: 2014Q1

REPORT INFORMATION
  Report Type: Spontaneous
  Country: US (occurrence: US)
  Receive Date: 20130613
  Receipt Date: 20140203
  Transmission Date: 20141002
  Serious: Yes (Hospitalization, Other)
  Sender: FDA-Public Use
  Company Number: US-ROCHE-792208

PATIENT
  Age: 32 Year
  Sex: Female
  Weight: 63.56 kg

DRUGS (7)
  1. ACCUTANE [Suspect]
     Indication: ECZEMA
     Route: 065
     Dates: start: 200402, end: 200404
  2. AMNESTEEM [Suspect]
     Indication: ECZEMA
     Route: 065
     Dates: start: 200311, end: 200312
  3. DOXEPIN [Concomitant]
  4. PREDNISONE [Concomitant]
  5. DURICEF [Concomitant]
  6. DIFLUCAN [Concomitant]
  7. ZYRTEC [Concomitant]

REACTIONS (8)
  - Crohn^s disease [Unknown]
  - Colitis ulcerative [Unknown]
  - Inflammatory bowel disease [Unknown]
  - Emotional distress [Unknown]
  - Depression [Unknown]
  - Perineal fistula [Unknown]
  - Eczema [Unknown]
  - Uveitis [Unknown]
